FAERS Safety Report 9407429 (Version 1)
Quarter: 2013Q3

REPORT INFORMATION
  Report Type: Spontaneous
  Country: US (occurrence: None)
  Receive Date: 20130717
  Receipt Date: 20130717
  Transmission Date: 20140515
  Serious: Yes (Death, Hospitalization)
  Sender: FDA-Public Use
  Company Number: None

PATIENT
  Age: 84 Year
  Sex: Female
  Weight: 76 kg

DRUGS (1)
  1. AFINITOR [Suspect]

REACTIONS (4)
  - Acute respiratory failure [None]
  - Stomatitis [None]
  - Mucosal haemorrhage [None]
  - Gastrointestinal haemorrhage [None]
